FAERS Safety Report 17795329 (Version 2)
Quarter: 2023Q2

REPORT INFORMATION
  Report Type: Spontaneous
  Country: DK (occurrence: DK)
  Receive Date: 20200515
  Receipt Date: 20230518
  Transmission Date: 20230722
  Serious: Yes (Death, Hospitalization)
  Sender: FDA-Public Use
  Company Number: None

PATIENT
  Age: 48 Year
  Sex: Male
  Weight: 75 kg

DRUGS (1)
  1. KEYTRUDA [Suspect]
     Active Substance: PEMBROLIZUMAB
     Indication: Non-small cell lung cancer metastatic
     Dosage: 150 MILLIGRAM, STRENGTH UNKNOWN
     Route: 042
     Dates: start: 20200424

REACTIONS (14)
  - Dyspnoea [Fatal]
  - Atrioventricular block complete [Fatal]
  - Bundle branch block right [Fatal]
  - Myocarditis [Fatal]
  - Discomfort [Fatal]
  - Cardiac arrest [Fatal]
  - Arthralgia [Fatal]
  - Pyrexia [Fatal]
  - Depressed level of consciousness [Fatal]
  - Sepsis [Fatal]
  - Decreased immune responsiveness [Fatal]
  - Cough [Fatal]
  - Myalgia [Fatal]
  - Myositis [Fatal]

NARRATIVE: CASE EVENT DATE: 20200101
